FAERS Safety Report 24539746 (Version 1)
Quarter: 2024Q4

REPORT INFORMATION
  Report Type: Spontaneous
  Country: KR (occurrence: KR)
  Receive Date: 20241023
  Receipt Date: 20241023
  Transmission Date: 20250115
  Serious: Yes (Hospitalization, Other)
  Sender: PFIZER
  Company Number: KR-HOSPIRA-2530663

PATIENT
  Age: 45 Year
  Sex: Male

DRUGS (3)
  1. FLUOROURACIL [Suspect]
     Active Substance: FLUOROURACIL
     Indication: Adenocarcinoma of colon
     Dosage: 400 MG/M2, CYCLIC; ON DAY 1, 12 CYCLE OVER A 6-MONTH PERIOD
  2. FLUOROURACIL [Suspect]
     Active Substance: FLUOROURACIL
     Dosage: 600 MG/M2,CYCLIC ON DAY 2, 12 CYCLE OVER A 6-MONTH PERIOD
  3. OXALIPLATIN [Suspect]
     Active Substance: OXALIPLATIN
     Indication: Adenocarcinoma of colon
     Dosage: 85 MG/M2, CYCLIC; ON DAY 1, 12 CYCLE OVER A 6-MONTH PERIOD

REACTIONS (5)
  - Hepatic necrosis [Unknown]
  - Hepatic fibrosis [Unknown]
  - Portal hypertension [Unknown]
  - Thrombocytopenia [Unknown]
  - Splenomegaly [Unknown]
